FAERS Safety Report 13362466 (Version 1)
Quarter: 2017Q1

REPORT INFORMATION
  Report Type: Spontaneous
  Country: US (occurrence: US)
  Receive Date: 20170322
  Receipt Date: 20170322
  Transmission Date: 20170429
  Serious: Yes (Disabling)
  Sender: FDA-Public Use
  Company Number: None

PATIENT
  Age: 64 Year
  Sex: Female
  Weight: 51.75 kg

DRUGS (15)
  1. ZINC. [Concomitant]
     Active Substance: ZINC
  2. RELPAX [Suspect]
     Active Substance: ELETRIPTAN HYDROBROMIDE
     Indication: MIGRAINE
  3. SINEMET [Concomitant]
     Active Substance: CARBIDOPA\LEVODOPA
  4. ARMOUR THYROID [Suspect]
     Active Substance: THYROID, PORCINE
  5. FOSAMAX [Concomitant]
     Active Substance: ALENDRONATE SODIUM
  6. PRAVASTATIN. [Concomitant]
     Active Substance: PRAVASTATIN
  7. MAGNESIUM [Concomitant]
     Active Substance: MAGNESIUM
  8. SINEMET SR [Concomitant]
  9. ALLEGRA [Concomitant]
     Active Substance: FEXOFENADINE HYDROCHLORIDE
  10. DAILY VITAMIN [Concomitant]
     Active Substance: VITAMINS
  11. CLARITIN [Concomitant]
     Active Substance: LORATADINE
  12. ALVESSCO [Concomitant]
  13. CALCIUM [Concomitant]
     Active Substance: CALCIUM
  14. OMNARIS [Concomitant]
     Active Substance: CICLESONIDE
  15. BABY ASPIRIN [Concomitant]
     Active Substance: ASPIRIN

REACTIONS (1)
  - Livedo reticularis [None]

NARRATIVE: CASE EVENT DATE: 20170319
